FAERS Safety Report 24571097 (Version 2)
Quarter: 2024Q4

REPORT INFORMATION
  Report Type: Spontaneous
  Country: US (occurrence: US)
  Receive Date: 20241101
  Receipt Date: 20241101
  Transmission Date: 20250115
  Serious: Yes (Hospitalization, Other)
  Sender: AMGEN
  Company Number: US-AMGEN-USASP2024210968

PATIENT
  Sex: Male

DRUGS (11)
  1. RITUXIMAB [Suspect]
     Active Substance: RITUXIMAB
     Indication: Rosai-Dorfman syndrome
     Dosage: 500 MILLIGRAM/SQ. METER, QWK (WEEKLY FOR FOUR WEEKS)
     Route: 065
  2. RITUXIMAB [Suspect]
     Active Substance: RITUXIMAB
     Indication: Off label use
     Dosage: 500 MILLIGRAM/SQ. METER, Q2MO (EVERY TWO MONTHS)
     Route: 065
  3. RITUXIMAB [Suspect]
     Active Substance: RITUXIMAB
     Dosage: 500 MILLIGRAM/SQ. METER, Q3MO (EVERY THREE MONTHS) (HELD FOR MORE THAN THREE TO SIX MONTHS)
     Route: 065
  4. FILGRASTIM [Suspect]
     Active Substance: FILGRASTIM
     Indication: Neutropenia
     Dosage: UNK
     Route: 065
  5. PREDNISONE [Suspect]
     Active Substance: PREDNISONE
     Indication: Rosai-Dorfman syndrome
     Dosage: 40 MILLIGRAM, QD (DAILY)
     Route: 048
  6. PREDNISONE [Suspect]
     Active Substance: PREDNISONE
     Indication: Respiratory distress
     Dosage: 30 MILLIGRAM, QD (DAILY)
     Route: 048
  7. PREDNISONE [Suspect]
     Active Substance: PREDNISONE
     Indication: Hypoxia
     Dosage: 1 MILLIGRAM, QD (DOSE TAPERED DOWN)
     Route: 048
  8. LENALIDOMIDE [Suspect]
     Active Substance: LENALIDOMIDE
     Indication: Rosai-Dorfman syndrome
     Dosage: 15 MILLIGRAM, QD (IMMUNOMODULATION FOLLOWED BY ONE WEEK OFF THERAPY AND HELD LATER FOR MORE THAN 3-
     Route: 065
  9. DEXAMETHASONE [Concomitant]
     Active Substance: DEXAMETHASONE
     Indication: Rosai-Dorfman syndrome
     Dosage: 4 MILLIGRAM, QWK (FROM MONDAY TO FRIDAY WEEKLY)
     Route: 065
  10. SIROLIMUS [Concomitant]
     Active Substance: SIROLIMUS
     Indication: Product used for unknown indication
     Dosage: 4 MILLIGRAM, QD
     Route: 048
  11. SIROLIMUS [Concomitant]
     Active Substance: SIROLIMUS
     Dosage: 6 MILLIGRAM, QD (DISCONTINUED AFTER TWO MONTHS OF THERAPY)
     Route: 048

REACTIONS (11)
  - Rosai-Dorfman syndrome [Unknown]
  - Splenomegaly [Unknown]
  - Histoplasmosis disseminated [Unknown]
  - Respiratory distress [Recovered/Resolved]
  - Hypoxia [Recovered/Resolved]
  - Lung infiltration [Recovered/Resolved]
  - Cytopenia [Recovering/Resolving]
  - Thrombocytopenia [Unknown]
  - Neutropenia [Unknown]
  - Off label use [Unknown]
  - Drug ineffective [Unknown]
